FAERS Safety Report 22530556 (Version 1)
Quarter: 2023Q2

REPORT INFORMATION
  Report Type: Spontaneous
  Country: FR (occurrence: FR)
  Receive Date: 20230607
  Receipt Date: 20230607
  Transmission Date: 20230722
  Serious: Yes (Death)
  Sender: FDA-Public Use
  Company Number: None

PATIENT

DRUGS (2)
  1. METHOTREXATE SODIUM [Suspect]
     Active Substance: METHOTREXATE SODIUM
     Dosage: UNK
     Dates: start: 202107, end: 202206
  2. TILDRAKIZUMAB [Suspect]
     Active Substance: TILDRAKIZUMAB
     Dosage: INJECTION PERFORMED IN THE FATHER OF THE FETUS: INJECTION AT WEEK 0, AT WEEK 4 THEN EVERY 12 WEEKS
     Dates: start: 202208

REACTIONS (2)
  - Exposure via father [Fatal]
  - Trisomy 21 [Fatal]

NARRATIVE: CASE EVENT DATE: 20220901
